FAERS Safety Report 7874267-1 (Version None)
Quarter: 2011Q4

REPORT INFORMATION
  Report Type: 
  Country: None (occurrence: None)
  Receive Date: 20111017
  Receipt Date: 20101206
  Transmission Date: 20120403
  Serious: Yes (Other)
  Sender: FDA-Public Use
  Company Number: 2010S1000400

PATIENT
  Age: 71 Year
  Sex: Female

DRUGS (6)
  1. CARDIZEM XL [Concomitant]
  2. COUMADIN [Concomitant]
  3. DIOVAN [Concomitant]
  4. DARVOCET-N 100 [Suspect]
     Indication: BACK PAIN
     Dosage: ORAL
     Route: 048
     Dates: end: 20101129
  5. XANAX [Concomitant]
  6. LISINOPRIL [Concomitant]

REACTIONS (4)
  - CARDIAC FAILURE [None]
  - MYOCARDIAL INFARCTION [None]
  - BLOOD PRESSURE INCREASED [None]
  - DIZZINESS [None]
